FAERS Safety Report 9180998 (Version 1)
Quarter: 2013Q1

REPORT INFORMATION
  Report Type: Spontaneous
  Country: FR (occurrence: None)
  Receive Date: 20130320
  Receipt Date: 20130320
  Transmission Date: 20140127
  Serious: Yes (Other)
  Sender: FDA-Public Use
  Company Number: DSM-2013-00335

PATIENT
  Age: 46 Year
  Sex: Female

DRUGS (2)
  1. AXELER [Suspect]
     Indication: HYPERTENSION
     Route: 048
     Dates: start: 20120605, end: 20121020
  2. HUMIRA (ADALIMUMAB) (ADALIMUMAB) [Concomitant]

REACTIONS (12)
  - Asthenia [None]
  - Myalgia [None]
  - Arthralgia [None]
  - Arthralgia [None]
  - Arthropathy [None]
  - Tendon pain [None]
  - Pain in extremity [None]
  - Arthritis [None]
  - Middle insomnia [None]
  - Local swelling [None]
  - Cough [None]
  - Dyspnoea [None]
